FAERS Safety Report 21118334 (Version 1)
Quarter: 2022Q3

REPORT INFORMATION
  Report Type: Spontaneous
  Country: RU (occurrence: None)
  Receive Date: 20220722
  Receipt Date: 20220722
  Transmission Date: 20221027
  Serious: Yes (Other)
  Sender: FDA-Public Use
  Company Number: RU-ROCHE-3143791

PATIENT
  Age: 44 Year
  Sex: Female

DRUGS (4)
  1. VEMURAFENIB [Suspect]
     Active Substance: VEMURAFENIB
     Indication: Malignant melanoma
     Route: 065
     Dates: start: 201912
  2. COBIMETINIB [Suspect]
     Active Substance: COBIMETINIB
     Indication: Malignant melanoma
     Route: 065
     Dates: start: 201912
  3. IPILIMUMAB [Suspect]
     Active Substance: IPILIMUMAB
     Indication: Malignant melanoma
     Route: 065
     Dates: start: 202112, end: 202202
  4. NIVOLUMAB [Suspect]
     Active Substance: NIVOLUMAB
     Indication: Malignant melanoma
     Dosage: 3 MG/KG
     Route: 065
     Dates: start: 202112

REACTIONS (3)
  - Neoplasm progression [Unknown]
  - Erythema [Unknown]
  - Therapy partial responder [Unknown]

NARRATIVE: CASE EVENT DATE: 20200601
